FAERS Safety Report 26182082 (Version 1)
Quarter: 2025Q4

REPORT INFORMATION
  Report Type: Spontaneous
  Country: US (occurrence: US)
  Receive Date: 20251221
  Receipt Date: 20251221
  Transmission Date: 20260117
  Serious: No
  Sender: PFIZER
  Company Number: US-PFIZER INC-202500244370

PATIENT
  Age: 74 Year
  Sex: Female

DRUGS (2)
  1. IBRANCE [Suspect]
     Active Substance: PALBOCICLIB
     Indication: Breast cancer
     Dosage: 75 MG, CYCLIC, ONE TABLET BY MOUTH ONCE A DAY FOR 21 DAYS THEN 7 DAYS OFF FOR 28 DAY CYCLE
     Route: 048
     Dates: start: 202510
  2. IBRANCE [Suspect]
     Active Substance: PALBOCICLIB
     Dosage: 75 MG, CYCLIC, ONE TABLET BY MOUTH ONCE A DAY FOR 21 DAYS THEN 7 DAYS OFF FOR 28 DAY CYCLE
     Route: 048

REACTIONS (2)
  - Product packaging difficult to open [Unknown]
  - Skin laceration [Unknown]
